FAERS Safety Report 8167943 (Version 8)
Quarter: 2013Q3

REPORT INFORMATION
  Report Type: Report from Study
  Country: CA (occurrence: CA)
  Receive Date: 20111004
  Receipt Date: 20130820
  Transmission Date: 20140515
  Serious: Yes (Other)
  Sender: FDA-Public Use
  Company Number: PHHY2010CA23406

PATIENT
  Age: 75 Year
  Sex: Male

DRUGS (2)
  1. ZOMETA [Suspect]
     Indication: PROSTATE CANCER
     Dosage: 4 MG EVERY 12 WEEKS
     Route: 042
     Dates: start: 20091030, end: 20130213
  2. ADVIL [Concomitant]
     Indication: METASTASES TO BONE
     Dosage: UNK UKN, PRN

REACTIONS (15)
  - Cataract [Unknown]
  - Atrial fibrillation [Unknown]
  - Heart rate irregular [Unknown]
  - Fatigue [Unknown]
  - Mobility decreased [Unknown]
  - General physical health deterioration [Unknown]
  - Fall [Unknown]
  - Chest discomfort [Unknown]
  - Spinal pain [Unknown]
  - Blood potassium decreased [Unknown]
  - Haemoglobin decreased [Unknown]
  - Haematocrit decreased [Unknown]
  - Mean cell haemoglobin concentration decreased [Unknown]
  - Blood pressure increased [Unknown]
  - Arthralgia [Recovering/Resolving]
